FAERS Safety Report 4918815-X (Version None)
Quarter: 2006Q1

REPORT INFORMATION
  Report Type: 
  Country: None (occurrence: None)
  Receive Date: 20060222
  Receipt Date: 20060216
  Transmission Date: 20060701
  Serious: Yes (Hospitalization)
  Sender: FDA-Public Use
  Company Number: FR-ROCHE-437044

PATIENT
  Age: 66 Year
  Sex: Female
  Weight: 44 kg

DRUGS (2)
  1. VALIUM [Suspect]
     Indication: EPILEPSY
     Route: 042
     Dates: start: 20051115, end: 20051115
  2. CLONAZEPAM [Suspect]
     Indication: EPILEPSY
     Dosage: GIVEN OVER 6 HOURS.
     Route: 042
     Dates: start: 20051115, end: 20051115

REACTIONS (3)
  - COMA [None]
  - DEPRESSED LEVEL OF CONSCIOUSNESS [None]
  - SOMNOLENCE [None]
